FAERS Safety Report 5219491-1 (Version None)
Quarter: 2007Q1

REPORT INFORMATION
  Report Type: 
  Country: None (occurrence: None)
  Receive Date: 20070125
  Receipt Date: 20070115
  Transmission Date: 20070707
  Serious: Yes (Other)
  Sender: FDA-Public Use
  Company Number: FR-BRISTOL-MYERS SQUIBB COMPANY-13644836

PATIENT
  Age: 78 Year
  Sex: Female

DRUGS (7)
  1. PRAVASTATIN [Suspect]
     Route: 048
     Dates: start: 20060830, end: 20060918
  2. ASPIRIN [Concomitant]
     Indication: EMBOLISM
     Route: 048
     Dates: start: 20060830
  3. ASPIRIN [Concomitant]
     Indication: VENOUS THROMBOSIS
     Route: 048
     Dates: start: 20060830
  4. MEDIATENSYL [Concomitant]
     Indication: ESSENTIAL HYPERTENSION
     Route: 048
     Dates: start: 20060830, end: 20060921
  5. DOLIPRANE [Concomitant]
     Route: 048
     Dates: end: 20060918
  6. DUPHALAC [Concomitant]
     Indication: CONSTIPATION
     Route: 048
     Dates: start: 20060830
  7. MORPHINE [Concomitant]
     Route: 048
     Dates: start: 20060830

REACTIONS (1)
  - GAMMA-GLUTAMYLTRANSFERASE INCREASED [None]
